FAERS Safety Report 7426472-6 (Version None)
Quarter: 2011Q2

REPORT INFORMATION
  Report Type: 
  Country: None (occurrence: None)
  Receive Date: 20110420
  Receipt Date: 20110411
  Transmission Date: 20111010
  Serious: Yes (Death, Other)
  Sender: FDA-Public Use
  Company Number: IT-JNJFOC-20110406714

PATIENT
  Age: 69 Year
  Sex: Male

DRUGS (3)
  1. DOXORUBICIN HYDROCHLORIDE [Suspect]
     Indication: LEUKAEMIA PLASMACYTIC
     Route: 042
  2. DEXAMETHASONE [Suspect]
     Indication: LEUKAEMIA PLASMACYTIC
     Route: 065
  3. BORTEZOMIB [Suspect]
     Indication: LEUKAEMIA PLASMACYTIC
     Route: 065

REACTIONS (2)
  - RENAL IMPAIRMENT [None]
  - DISEASE PROGRESSION [None]
